FAERS Safety Report 11654244 (Version 1)
Quarter: 2015Q4

REPORT INFORMATION
  Report Type: Spontaneous
  Country: GB (occurrence: GB)
  Receive Date: 20151023
  Receipt Date: 20151023
  Transmission Date: 20160304
  Serious: Yes (Death, Hospitalization, Other)
  Sender: FDA-Public Use
  Company Number: GB-ZYDUS-009250

PATIENT
  Age: 73 Year
  Sex: Female

DRUGS (4)
  1. FUROSEMIDE. [Concomitant]
     Active Substance: FUROSEMIDE
     Indication: PULMONARY OEDEMA
     Dosage: 50 MG TWO TIMES A DAY
     Route: 042
  2. FONDAPARINUX/FONDAPARINUX SODIUM [Concomitant]
     Indication: ACUTE CORONARY SYNDROME
     Route: 058
  3. ACETYLSALICYLIC ACID [Suspect]
     Active Substance: ASPIRIN
     Indication: ACUTE CORONARY SYNDROME
     Dosage: LOADING DOSE OF 300 MG, THEN MAINTAINED ON 75 MG ASPIRIN.
     Route: 048
  4. CLOPIDOGREL [Suspect]
     Active Substance: CLOPIDOGREL BISULFATE
     Indication: ACUTE CORONARY SYNDROME
     Dosage: LOADING DOSE OF 300MG ORALLY, THEN MAINTAINED ON 75 MG.
     Route: 048

REACTIONS (3)
  - Spinal cord compression [Fatal]
  - Extradural haematoma [Fatal]
  - Sepsis [Fatal]
